FAERS Safety Report 7791793-4 (Version None)
Quarter: 2011Q4

REPORT INFORMATION
  Report Type: 
  Country: None (occurrence: None)
  Receive Date: 20111003
  Receipt Date: 20110927
  Transmission Date: 20120403
  Serious: No
  Sender: FDA-Public Use
  Company Number: US-PFIZER INC-2011230977

PATIENT
  Sex: Male
  Weight: 127 kg

DRUGS (6)
  1. RENAL CAPS [Concomitant]
     Indication: RENAL FAILURE CHRONIC
     Dosage: UNK
  2. LIPITOR [Suspect]
     Dosage: 80 MG, UNK
     Dates: end: 20110101
  3. LANTHANUM CARBONATE [Concomitant]
     Indication: RENAL FAILURE CHRONIC
     Dosage: 2000 MG, 3X/DAY
  4. LIPITOR [Suspect]
     Indication: BLOOD CHOLESTEROL ABNORMAL
     Dosage: 10 MG, UNK
     Dates: start: 20081010, end: 20091120
  5. LIPITOR [Suspect]
     Dosage: 20 MG, UNK
     Dates: start: 20091120
  6. EZETIMIBE [Concomitant]
     Indication: BLOOD CHOLESTEROL ABNORMAL
     Dosage: 10 MG, 1X/DAY

REACTIONS (1)
  - BLOOD CALCIUM INCREASED [None]
